FAERS Safety Report 5636166-5 (Version None)
Quarter: 2008Q1

REPORT INFORMATION
  Report Type: 
  Country: None (occurrence: None)
  Receive Date: 20080220
  Receipt Date: 20080208
  Transmission Date: 20080703
  Serious: Yes (Hospitalization, Other)
  Sender: FDA-Public Use
  Company Number: 028-C5013-07120984

PATIENT
  Age: 60 Year
  Sex: Male
  Weight: 82 kg

DRUGS (9)
  1. CC-5013 (LENALIDOMIDE) (15 MILLIGRAM, CAPSULES) [Suspect]
     Indication: MULTIPLE MYELOMA
     Dosage: 15 MG, DAILY X 21 DAYS OF 28 DAY CYCLE, ORAL
     Route: 048
     Dates: start: 20071023, end: 20071104
  2. DEXAMETHASONE TAB [Suspect]
     Indication: MULTIPLE MYELOMA
  3. COUMADIN [Concomitant]
  4. SODIUM BICARBONATE (SODIUM BICARBONATE) (TABLETS) [Concomitant]
  5. ZOPICLONE (ZOPICLONE) [Concomitant]
  6. METOPROLOL TARTRATE [Concomitant]
  7. MIRTAZAPINE [Concomitant]
  8. OLANZAPINE [Concomitant]
  9. HYDROCORTISONE [Concomitant]

REACTIONS (14)
  - ATRIAL FIBRILLATION [None]
  - CENTRAL NERVOUS SYSTEM INFECTION [None]
  - CLOSTRIDIUM DIFFICILE COLITIS [None]
  - CONFUSIONAL STATE [None]
  - DEHYDRATION [None]
  - DRUG INTOLERANCE [None]
  - LISTERIA SEPSIS [None]
  - LOBAR PNEUMONIA [None]
  - MITRAL VALVE DISEASE [None]
  - NEUTROPENIA [None]
  - RENAL FAILURE ACUTE [None]
  - RHABDOMYOLYSIS [None]
  - STAPHYLOCOCCAL INFECTION [None]
  - THROMBOCYTOPENIA [None]
